FAERS Safety Report 4337190-5 (Version None)
Quarter: 2004Q2

REPORT INFORMATION
  Report Type: 
  Country: None (occurrence: None)
  Receive Date: 20040407
  Receipt Date: 20040323
  Transmission Date: 20050107
  Serious: Yes (Death)
  Sender: FDA-Public Use
  Company Number: 2004-DE-01466GD

PATIENT
  Age: 37 Year
  Sex: Female

DRUGS (2)
  1. PREDNISONE [Suspect]
     Indication: PNEUMOCYSTIS CARINII PNEUMONIA
  2. BACTRIM [Concomitant]

REACTIONS (6)
  - BILE DUCT STENOSIS [None]
  - BILIARY DILATATION [None]
  - HYPOXIA [None]
  - MULTI-ORGAN DISORDER [None]
  - SEPSIS [None]
  - STRONGYLOIDIASIS [None]
